FAERS Safety Report 8839271 (Version 1)
Quarter: 2012Q4

REPORT INFORMATION
  Report Type: 
  Country: BR (occurrence: BR)
  Receive Date: 20121015
  Receipt Date: 20121015
  Transmission Date: 20130627
  Serious: Yes (Other)
  Sender: FDA-Public Use
  Company Number: BR-ACCORD-014871

PATIENT
  Age: 34 Year
  Sex: Female
  Weight: 56.2 kg

DRUGS (5)
  1. DEXAMETHASONE [Concomitant]
     Indication: PREMEDICATION
     Route: 042
     Dates: start: 20120914, end: 20120914
  2. RANITIDINE [Concomitant]
     Route: 042
     Dates: start: 20120914, end: 20120914
  3. ONDANSETRON [Concomitant]
     Route: 042
     Dates: start: 20120914, end: 20120914
  4. DIPHENHYDRAMINE [Concomitant]
     Route: 042
     Dates: start: 20120914, end: 20120914
  5. PACLITAXEL [Suspect]
     Indication: INVASIVE DUCTAL BREAST CANCER
     Dosage: 175 mg/m? started from 03-Aug-2012.
     Route: 042
     Dates: start: 20120914, end: 20120914

REACTIONS (2)
  - Dyspnoea [Recovered/Resolved]
  - Erythema [Recovered/Resolved]
